FAERS Safety Report 11749525 (Version 1)
Quarter: 2015Q4

REPORT INFORMATION
  Report Type: Spontaneous
  Country: US (occurrence: US)
  Receive Date: 20151118
  Receipt Date: 20151118
  Transmission Date: 20160304
  Serious: Yes (Other)
  Sender: FDA-Public Use
  Company Number: US-ASTRAZENECA-2015SF09835

PATIENT
  Age: 37 Year
  Sex: Female
  Weight: 63.5 kg

DRUGS (10)
  1. BUSPAR [Concomitant]
     Active Substance: BUSPIRONE HYDROCHLORIDE
     Indication: POST-TRAUMATIC STRESS DISORDER
  2. PROTONIX [Concomitant]
     Active Substance: PANTOPRAZOLE SODIUM
     Indication: IRRITABLE BOWEL SYNDROME
  3. ALLERGY MEDICINE [Concomitant]
     Active Substance: DIPHENHYDRAMINE HYDROCHLORIDE
     Indication: CUTANEOUS LUPUS ERYTHEMATOSUS
  4. BENTYL [Concomitant]
     Active Substance: DICYCLOMINE HYDROCHLORIDE
     Indication: IRRITABLE BOWEL SYNDROME
  5. PREDNISONE. [Concomitant]
     Active Substance: PREDNISONE
     Indication: DYSPNOEA
  6. CHANTIX [Suspect]
     Active Substance: VARENICLINE TARTRATE
     Indication: SMOKING CESSATION THERAPY
     Dosage: 0.5MG TWICE A DAY WEEK 1, THEN 1MG A DAY FOR THE OTHER 3 WEEKS
     Route: 065
     Dates: start: 201008, end: 201009
  7. PROAIR HFA [Concomitant]
     Active Substance: ALBUTEROL SULFATE
     Indication: DYSPNOEA
     Dosage: 5 TIMES AN HOUR
  8. PROMETHAZINE [Concomitant]
     Active Substance: PROMETHAZINE\PROMETHAZINE HYDROCHLORIDE
     Indication: COUGH
     Route: 048
  9. XANAX [Concomitant]
     Active Substance: ALPRAZOLAM
     Indication: ANXIETY
  10. SEROQUEL [Suspect]
     Active Substance: QUETIAPINE FUMARATE
     Indication: POST-TRAUMATIC STRESS DISORDER
     Route: 048

REACTIONS (7)
  - Cervix carcinoma [Not Recovered/Not Resolved]
  - Bronchitis [Unknown]
  - Major depression [Not Recovered/Not Resolved]
  - Chronic obstructive pulmonary disease [Not Recovered/Not Resolved]
  - Anxiety [Not Recovered/Not Resolved]
  - Cutaneous lupus erythematosus [Not Recovered/Not Resolved]
  - Dyspnoea [Unknown]

NARRATIVE: CASE EVENT DATE: 2012
